FAERS Safety Report 16413047 (Version 3)
Quarter: 2019Q3

REPORT INFORMATION
  Report Type: Report from Study
  Country: None (occurrence: BE)
  Receive Date: 20190611
  Receipt Date: 20190924
  Transmission Date: 20191004
  Serious: Yes (Hospitalization, Other)
  Sender: FDA-Public Use
  Company Number: BE-ABBVIE-19S-013-2813944-00

PATIENT
  Sex: Male

DRUGS (6)
  1. DUODOPA [Suspect]
     Active Substance: CARBIDOPA\LEVODOPA
     Dosage: DOSES CONTINUOUSLY MONITORED AND ADAPTED
     Route: 050
     Dates: start: 20170322, end: 20190426
  2. PROLOPA 250 [Concomitant]
     Indication: PARKINSON^S DISEASE
     Dosage: FORM STRENGTH: 200MG/50MG
     Route: 048
  3. DUODOPA [Suspect]
     Active Substance: CARBIDOPA\LEVODOPA
     Dosage: MD=5.5ML CD=3.8ML/HR DURING 16HRS ED=3.5ML ND=4.0ML/HR DURING 8HRS
     Route: 050
     Dates: start: 20190426
  4. DUODOPA [Suspect]
     Active Substance: CARBIDOPA\LEVODOPA
     Dosage: MD=2.5ML, CD=4.4ML/HR DURING 16HRS, ED=3.5ML, ND=3.9ML/HR
     Route: 050
     Dates: start: 20190704
  5. DUODOPA [Suspect]
     Active Substance: CARBIDOPA\LEVODOPA
     Indication: PARKINSON^S DISEASE
     Dosage: MD=10ML CD=4.2ML/HR DURING 16HRS ED=3ML
     Route: 050
     Dates: start: 20161031, end: 20170322
  6. PROLOPA 250 [Concomitant]
     Dosage: FORM STRENGTH: 200MG/50MG; RESCUE MEDICATION

REACTIONS (8)
  - Cholelithiasis [Unknown]
  - Pancreatitis [Unknown]
  - Confusional state [Not Recovered/Not Resolved]
  - Depressed level of consciousness [Unknown]
  - Colitis [Unknown]
  - Appendicitis [Unknown]
  - Bladder hypertrophy [Unknown]
  - Urinary bladder polyp [Recovering/Resolving]
